FAERS Safety Report 6632327-7 (Version None)
Quarter: 2010Q1

REPORT INFORMATION
  Report Type: 
  Country: None (occurrence: None)
  Receive Date: 20100312
  Receipt Date: 20100308
  Transmission Date: 20100710
  Serious: Yes (Hospitalization)
  Sender: FDA-Public Use
  Company Number: B0638169A

PATIENT
  Sex: Male

DRUGS (1)
  1. AUGMENTIN '125' [Suspect]
     Indication: TOOTH DISORDER
     Dosage: 1UNIT PER DAY
     Route: 048
     Dates: start: 20080401, end: 20080401

REACTIONS (4)
  - ANAPHYLACTIC REACTION [None]
  - RESPIRATORY DISTRESS [None]
  - SKIN TEST POSITIVE [None]
  - URTICARIA [None]
